FAERS Safety Report 8086461 (Version 3)
Quarter: 2013Q1

REPORT INFORMATION
  Report Type: Report from Study
  Country: US (occurrence: US)
  Receive Date: 20110811
  Receipt Date: 20130101
  Transmission Date: 20140127
  Serious: Yes (Hospitalization)
  Sender: FDA-Public Use
  Company Number: PHHO2011US11136

PATIENT
  Age: 68 Year
  Sex: Male
  Weight: 69.4 kg

DRUGS (5)
  1. CERTICAN [Suspect]
     Indication: RENAL TRANSPLANT
     Dosage: 1.5 MG, Q12H
     Dates: start: 20110322
  2. CERTICAN [Suspect]
     Dosage: 0.75 MG, Q12H
     Dates: start: 20110625
  3. PROGRAF [Suspect]
     Indication: RENAL TRANSPLANT
     Dosage: 1 MG, Q12H
     Route: 048
     Dates: start: 20110321
  4. VALCYTE [Suspect]
  5. NORVASC [Suspect]

REACTIONS (3)
  - Pneumonia [Recovered/Resolved]
  - Thrombocytopenia [Recovering/Resolving]
  - Transaminases increased [Recovered/Resolved]
